FAERS Safety Report 6257220-3 (Version None)
Quarter: 2009Q3

REPORT INFORMATION
  Report Type: 
  Country: None (occurrence: None)
  Receive Date: 20090706
  Receipt Date: 20090702
  Transmission Date: 20100115
  Serious: Yes (Hospitalization, Other)
  Sender: FDA-Public Use
  Company Number: US-AMGEN-US353588

PATIENT
  Sex: Male

DRUGS (2)
  1. NPLATE [Suspect]
     Indication: MYELODYSPLASTIC SYNDROME
     Route: 065
     Dates: start: 20090415, end: 20090619
  2. AZACITIDINE [Concomitant]

REACTIONS (6)
  - ARTERIAL THROMBOSIS [None]
  - BLAST CELL COUNT INCREASED [None]
  - CHRONIC MYELOMONOCYTIC LEUKAEMIA [None]
  - EXOPHTHALMOS [None]
  - MALIGNANT NEOPLASM PROGRESSION [None]
  - VENOUS THROMBOSIS [None]
